FAERS Safety Report 8395838-2 (Version None)
Quarter: 2012Q2

REPORT INFORMATION
  Report Type: 
  Country: None (occurrence: None)
  Receive Date: 20120530
  Receipt Date: 20120525
  Transmission Date: 20120825
  Serious: Yes (Other)
  Sender: FDA-Public Use
  Company Number: NL-ROCHE-1072380

PATIENT
  Sex: Female

DRUGS (1)
  1. HERCEPTIN [Suspect]
     Indication: BREAST CANCER

REACTIONS (7)
  - MUSCULOSKELETAL PAIN [None]
  - EJECTION FRACTION DECREASED [None]
  - FATIGUE [None]
  - PAIN IN EXTREMITY [None]
  - MUSCULOSKELETAL CHEST PAIN [None]
  - ALOPECIA [None]
  - FLUID RETENTION [None]
